FAERS Safety Report 6165035-X (Version None)
Quarter: 2009Q2

REPORT INFORMATION
  Report Type: 
  Country: None (occurrence: None)
  Receive Date: 20090423
  Receipt Date: 20090416
  Transmission Date: 20091009
  Serious: Yes (Other)
  Sender: FDA-Public Use
  Company Number: US-ASTRAZENECA-2009UW09636

PATIENT
  Age: 77 Year
  Sex: Female

DRUGS (1)
  1. NEXIUM [Suspect]
     Dosage: LONG TERM
     Route: 048

REACTIONS (2)
  - GASTRIC CANCER [None]
  - MYOCARDIAL INFARCTION [None]
